FAERS Safety Report 15261300 (Version 1)
Quarter: 2018Q3

REPORT INFORMATION
  Report Type: Spontaneous
  Country: GB (occurrence: GB)
  Receive Date: 20180809
  Receipt Date: 20180809
  Transmission Date: 20181010
  Serious: Yes (Death, Other)
  Sender: FDA-Public Use
  Company Number: GB-SHIRE-GB201830144

PATIENT

DRUGS (1)
  1. FEIBA NF [Suspect]
     Active Substance: ANTI-INHIBITOR COAGULANT COMPLEX
     Indication: HAEMORRHAGE
     Dosage: UNK UNK, 2X/DAY:BID
     Route: 065

REACTIONS (2)
  - Death [Fatal]
  - Myocardial infarction [Unknown]
